FAERS Safety Report 8485153-0 (Version None)
Quarter: 2012Q3

REPORT INFORMATION
  Report Type: 
  Country: None (occurrence: None)
  Receive Date: 20120703
  Receipt Date: 20120702
  Transmission Date: 20120928
  Serious: Yes (Other)
  Sender: FDA-Public Use
  Company Number: US-PFIZER INC-2010US-36112

PATIENT
  Sex: Female
  Weight: 52.16 kg

DRUGS (2)
  1. CALAN [Suspect]
     Indication: MIGRAINE
     Dosage: UNK
     Dates: start: 20050801, end: 20050819
  2. ACETAMINOPHEN [Suspect]
     Indication: ILL-DEFINED DISORDER
     Dosage: UNK
     Dates: start: 20000101, end: 20050819

REACTIONS (1)
  - HEPATITIS [None]
